FAERS Safety Report 7497277-5 (Version None)
Quarter: 2011Q2

REPORT INFORMATION
  Report Type: 
  Country: None (occurrence: None)
  Receive Date: 20110523
  Receipt Date: 20110510
  Transmission Date: 20111010
  Serious: Yes (Other)
  Sender: FDA-Public Use
  Company Number: PHHY2011JP30016

PATIENT
  Sex: Male
  Weight: 64 kg

DRUGS (9)
  1. DIOVAN [Suspect]
     Dosage: 160 MG, QD
     Route: 048
     Dates: start: 20101025, end: 20110406
  2. ALLOPURINOL [Concomitant]
     Dosage: 200 MG, UNK
     Route: 048
     Dates: start: 20101122
  3. DIOVAN [Suspect]
     Indication: HYPERTENSION
     Dosage: 80 MG, QD
     Route: 048
     Dates: start: 20100512, end: 20100514
  4. DIOVAN [Suspect]
     Dosage: 80 MG, BID
     Route: 048
     Dates: start: 20100515, end: 20101024
  5. GASLON [Concomitant]
     Dosage: 4 MG, UNK
     Route: 048
     Dates: start: 20100915
  6. AMLODIPINE [Concomitant]
     Indication: HYPERTENSION
     Dosage: 5 MG, QD
     Route: 048
  7. AMLODIPINE [Concomitant]
     Dosage: 10 MG, QD
     Route: 048
  8. BIOFERMIN [Concomitant]
     Dosage: 2 DF, UNK
     Route: 048
     Dates: start: 20100915
  9. ADALAT CC [Concomitant]
     Dosage: 40 MG, UNK
     Dates: start: 20100512

REACTIONS (1)
  - BLOOD CREATINE PHOSPHOKINASE INCREASED [None]
